FAERS Safety Report 8377734-X (Version None)
Quarter: 2012Q2

REPORT INFORMATION
  Report Type: 
  Country: None (occurrence: None)
  Receive Date: 20120522
  Receipt Date: 20120514
  Transmission Date: 20120825
  Serious: Yes (Hospitalization)
  Sender: FDA-Public Use
  Company Number: US-GLAXOSMITHKLINE-B0801951A

PATIENT
  Age: 35 Year
  Sex: Female
  Weight: 54.5 kg

DRUGS (2)
  1. AZITHROMYCIN [Suspect]
     Indication: PNEUMONIA
     Dosage: 500MG PER DAY
     Route: 042
     Dates: start: 20120308, end: 20120310
  2. ZANAMIVIR [Suspect]
     Indication: H1N1 INFLUENZA
     Route: 042
     Dates: start: 20120309, end: 20120310

REACTIONS (2)
  - ELECTROCARDIOGRAM QT PROLONGED [None]
  - BRADYCARDIA [None]
